FAERS Safety Report 6077286-3 (Version None)
Quarter: 2009Q1

REPORT INFORMATION
  Report Type: 
  Country: None (occurrence: None)
  Receive Date: 20090213
  Receipt Date: 20090209
  Transmission Date: 20090719
  Serious: Yes (Other)
  Sender: FDA-Public Use
  Company Number: A0767472A

PATIENT
  Age: 83 Year
  Sex: Female

DRUGS (7)
  1. LANOXIN [Suspect]
     Indication: ATRIAL FIBRILLATION
     Dosage: .125MG PER DAY
     Route: 048
  2. DIGOXIN [Suspect]
     Indication: ATRIAL FIBRILLATION
  3. METOPROLOL TARTRATE [Concomitant]
  4. FUROSEMIDE [Concomitant]
  5. WARFARIN SODIUM [Concomitant]
  6. POTASSIUM CHLORIDE [Concomitant]
  7. METOLAZONE [Concomitant]

REACTIONS (4)
  - ANAEMIA [None]
  - ASTHENIA [None]
  - DIZZINESS [None]
  - PRODUCT QUALITY ISSUE [None]
